FAERS Safety Report 7209709-8 (Version None)
Quarter: 2011Q1

REPORT INFORMATION
  Report Type: 
  Country: None (occurrence: None)
  Receive Date: 20110104
  Receipt Date: 20101221
  Transmission Date: 20110831
  Serious: Yes (Other)
  Sender: FDA-Public Use
  Company Number: US-JNJFOC-20110100475

PATIENT
  Age: 25 Week

DRUGS (2)
  1. EXTRA STRENGTH TYLENOL [Suspect]
     Route: 015
  2. EXTRA STRENGTH TYLENOL [Suspect]
     Indication: DRUG EXPOSURE DURING PREGNANCY
     Dosage: OVER LAST 48 HOURS
     Route: 015

REACTIONS (1)
  - PREMATURE BABY [None]
